FAERS Safety Report 8468843-5 (Version None)
Quarter: 2012Q2

REPORT INFORMATION
  Report Type: 
  Country: None (occurrence: None)
  Receive Date: 20120626
  Receipt Date: 20120622
  Transmission Date: 20120825
  Serious: Yes (Other)
  Sender: FDA-Public Use
  Company Number: US-BAYER-2012-050317

PATIENT
  Age: 35 Year
  Sex: Female
  Weight: 181.41 kg

DRUGS (1)
  1. MIRENA [Suspect]
     Dosage: UNK
     Dates: start: 20120504, end: 20120508

REACTIONS (2)
  - DEVICE EXPULSION [None]
  - DEVICE DISLOCATION [None]
